FAERS Safety Report 5930136-5 (Version None)
Quarter: 2008Q4

REPORT INFORMATION
  Report Type: 
  Country: None (occurrence: None)
  Receive Date: 20081024
  Receipt Date: 20081014
  Transmission Date: 20090506
  Serious: Yes (Hospitalization, Other)
  Sender: FDA-Public Use
  Company Number: US-PFIZER INC-2008086558

PATIENT

DRUGS (1)
  1. LIPITOR [Suspect]

REACTIONS (2)
  - BILIARY DYSKINESIA [None]
  - PANCREATITIS [None]
